FAERS Safety Report 15656118 (Version 3)
Quarter: 2019Q1

REPORT INFORMATION
  Report Type: Spontaneous
  Country: JP (occurrence: JP)
  Receive Date: 20181126
  Receipt Date: 20190122
  Transmission Date: 20190417
  Serious: Yes (Other)
  Sender: FDA-Public Use
  Company Number: JP-PFIZER INC-2018484999

PATIENT
  Age: 56 Year
  Sex: Female
  Weight: 56 kg

DRUGS (15)
  1. ZALTRAP [Suspect]
     Active Substance: ZIV-AFLIBERCEPT
     Dosage: 224 MG/BODY
     Dates: start: 20180619, end: 20180730
  2. CAMPTO [Suspect]
     Active Substance: IRINOTECAN
     Dosage: 235.2 MG, ONCE A DAY
     Route: 041
     Dates: start: 20180717, end: 20180717
  3. CAMPTO [Suspect]
     Active Substance: IRINOTECAN
     Dosage: 235.2 MG, ONCE A DAY
     Route: 041
     Dates: start: 20180730
  4. LEVOLEUCOVORIN CALCIUM. [Suspect]
     Active Substance: LEVOLEUCOVORIN CALCIUM
     Dosage: 313.6 MG, ONCE A DAY
     Route: 041
     Dates: start: 20180730
  5. MAGMITT [Suspect]
     Active Substance: MAGNESIUM OXIDE
     Dosage: UNK
     Route: 048
  6. CAMPTO [Suspect]
     Active Substance: IRINOTECAN
     Indication: RECTAL CANCER
     Dosage: 235.2 MG, ONCE A DAY (235.2 MG/BODY (150 MG/M2))
     Route: 041
     Dates: start: 20180619, end: 20180619
  7. LEVOLEUCOVORIN CALCIUM. [Suspect]
     Active Substance: LEVOLEUCOVORIN CALCIUM
     Indication: RECTAL CANCER
     Dosage: 313.6 MG, 1X/DAY (313.6 MG/BODY (200 MG/M2))
     Route: 041
     Dates: start: 20180619, end: 20180619
  8. LEVOLEUCOVORIN CALCIUM. [Suspect]
     Active Substance: LEVOLEUCOVORIN CALCIUM
     Dosage: 313.6 MG, ONCE A DAY
     Route: 041
     Dates: start: 20180703, end: 20180703
  9. 5-FU [FLUOROURACIL] [Suspect]
     Active Substance: FLUOROURACIL
     Indication: RECTAL CANCER
     Dosage: 3763.2 MG, ONCE IN 2 DAYS (D1-2)
     Route: 041
     Dates: start: 20180619, end: 20180619
  10. 5-FU [FLUOROURACIL] [Suspect]
     Active Substance: FLUOROURACIL
     Dosage: 3763.2 MG, ONCE IN 2 DAYS
     Route: 041
     Dates: start: 20180703, end: 20180703
  11. BEVACIZUMAB. [Concomitant]
     Active Substance: BEVACIZUMAB
     Dosage: UNK
     Dates: start: 201802, end: 201806
  12. CAMPTO [Suspect]
     Active Substance: IRINOTECAN
     Dosage: 235.2 MG, ONCE A DAY
     Route: 041
     Dates: start: 20180703, end: 20180703
  13. LEVOLEUCOVORIN CALCIUM. [Suspect]
     Active Substance: LEVOLEUCOVORIN CALCIUM
     Dosage: 313.6 MG, ONCE A DAY
     Route: 041
     Dates: start: 20180717, end: 20180717
  14. 5-FU [FLUOROURACIL] [Suspect]
     Active Substance: FLUOROURACIL
     Dosage: 3763.2 MG, ONCE IN 2 DAYS
     Route: 041
     Dates: start: 20180717, end: 20180717
  15. 5-FU [FLUOROURACIL] [Suspect]
     Active Substance: FLUOROURACIL
     Dosage: 3763.2 MG, ONCE IN 2 DAYS
     Route: 041
     Dates: start: 20180730

REACTIONS (9)
  - Diarrhoea [Recovering/Resolving]
  - Alanine aminotransferase increased [Not Recovered/Not Resolved]
  - Blood alkaline phosphatase increased [Not Recovered/Not Resolved]
  - Pain [Recovered/Resolved]
  - Aspartate aminotransferase increased [Not Recovered/Not Resolved]
  - Fatigue [Recovered/Resolved]
  - Gamma-glutamyltransferase increased [Not Recovered/Not Resolved]
  - Neuropathy peripheral [Not Recovered/Not Resolved]
  - Anaemia [Recovered/Resolved]
